FAERS Safety Report 9378879 (Version 3)
Quarter: 2013Q3

REPORT INFORMATION
  Report Type: Spontaneous
  Country: US (occurrence: US)
  Receive Date: 20130702
  Receipt Date: 20130814
  Transmission Date: 20140515
  Serious: No
  Sender: FDA-Public Use
  Company Number: US-PFIZER INC-2013191745

PATIENT
  Age: 82 Year
  Sex: Male

DRUGS (20)
  1. SUTENT [Suspect]
     Indication: METASTATIC RENAL CELL CARCINOMA
     Dosage: 50 MG, CYCLIC (QDX 28 DAYS WITH 14 DAYS REST)
     Route: 048
     Dates: start: 20130608, end: 20130628
  2. SUTENT [Suspect]
     Dosage: 50 MG, 1X/DAY
     Route: 048
     Dates: start: 20130724, end: 20130731
  3. CALCIUM WITH VITAMIN D [Concomitant]
     Dosage: 1200 MG, 1X/DAY (QD) (600MG TABLET) WITH VITAMIN D
     Route: 048
  4. FENOFIBRATE [Concomitant]
     Dosage: 160 MG, 1X/DAY (QD)
     Route: 048
  5. FIBER [Concomitant]
     Dosage: 2 DF, 1X/DAY (2 CAP QD)
     Route: 048
  6. GLUCOSE [Concomitant]
     Dosage: 1 DF, AS NEEDED (1 TAB PO PRN)
     Route: 048
  7. FLOMAX [Concomitant]
     Dosage: 0.4 MG, 1X/DAY (QD)
     Route: 048
  8. LOPRESSOR [Concomitant]
     Dosage: 25 MG, 2X/DAY
     Route: 048
  9. PRAVACHOL [Concomitant]
     Dosage: 80 MG, 1X/DAY (QD)
     Route: 048
  10. SYNTHROID [Concomitant]
     Dosage: 0.1 MG, 1X/DAY (QD) (0.1MG /100 MCG TAB)
     Route: 048
  11. MEGACE ORAL [Concomitant]
     Dosage: 20 MG, 1X/DAY (QD)
     Route: 048
  12. MARY^S MAGIC MOUTHWASH [Concomitant]
     Dosage: 5 ML, 4X/DAY (QID)
     Route: 048
  13. ZANTAC [Concomitant]
     Dosage: 150 MG, 2X/DAY (BID)
     Route: 048
  14. ASA [Concomitant]
     Dosage: 81 MG, 1X/DAY (QD)
     Route: 048
  15. D3 [Concomitant]
     Dosage: 1 DF, 1X/DAY (1 PO QD)
     Route: 048
  16. ASPIRIN [Concomitant]
     Dosage: 81 MG, 1X/DAY
     Route: 048
  17. DIFLUCAN [Concomitant]
     Dosage: 150 MG, 1X/DAY
     Route: 048
  18. PROSTAT [Concomitant]
     Dosage: UNK, 2X/DAY
  19. MYCOSTATIN [Concomitant]
     Dosage: UNK, 2X/DAY (15 GM OIN 1 APP EXTERNAL TWO TIMES A DAY APPLY TO AFFECTED AREA TWICE A DAY)
  20. COMPAZINE [Concomitant]
     Dosage: 10 MG, AS NEEDED (EVERY 4 TO 6 HOURS AS NEEDED)
     Route: 048

REACTIONS (18)
  - Skin candida [Unknown]
  - Fatigue [Unknown]
  - Asthenia [Unknown]
  - Dysphagia [Unknown]
  - Stomatitis [Unknown]
  - Nausea [Unknown]
  - Vomiting [Unknown]
  - Decreased appetite [Unknown]
  - Diarrhoea [Unknown]
  - Abdominal pain [Recovering/Resolving]
  - Dyspnoea [Unknown]
  - Dizziness postural [Unknown]
  - Weight decreased [Unknown]
  - Constipation [Unknown]
  - Headache [Unknown]
  - Aspartate aminotransferase increased [Unknown]
  - Platelet count increased [Unknown]
  - Blood creatinine increased [Unknown]
